FAERS Safety Report 10825112 (Version 2)
Quarter: 2015Q1

REPORT INFORMATION
  Report Type: Report from Study
  Country: US (occurrence: US)
  Receive Date: 20150219
  Receipt Date: 20150318
  Transmission Date: 20150721
  Serious: Yes (Other)
  Sender: FDA-Public Use
  Company Number: US-ABBVIE-14K-163-1319100-00

PATIENT
  Sex: Male

DRUGS (1)
  1. HUMIRA [Suspect]
     Active Substance: ADALIMUMAB
     Indication: PSORIATIC ARTHROPATHY
     Route: 065
     Dates: start: 20090101

REACTIONS (3)
  - Chest pain [Not Recovered/Not Resolved]
  - Coronary artery occlusion [Recovered/Resolved]
  - Vascular stent insertion [Unknown]

NARRATIVE: CASE EVENT DATE: 2013
